FAERS Safety Report 22654401 (Version 1)
Quarter: 2023Q2

REPORT INFORMATION
  Report Type: Spontaneous
  Country: US (occurrence: None)
  Receive Date: 20230628
  Receipt Date: 20230628
  Transmission Date: 20230721
  Serious: Yes (Death)
  Sender: FDA-Public Use
  Company Number: None

PATIENT
  Sex: Male

DRUGS (1)
  1. DARZALEX [Suspect]
     Active Substance: DARATUMUMAB
     Indication: Plasma cell myeloma
     Dates: end: 20230518

REACTIONS (12)
  - General physical health deterioration [None]
  - Gait disturbance [None]
  - Decreased appetite [None]
  - Nausea [None]
  - Anal incontinence [None]
  - Urinary incontinence [None]
  - Delusional perception [None]
  - Hallucination, visual [None]
  - Trismus [None]
  - Tremor [None]
  - Organ failure [None]
  - Cardiac arrest [None]
